FAERS Safety Report 7993584-8 (Version None)
Quarter: 2011Q4

REPORT INFORMATION
  Report Type: 
  Country: None (occurrence: None)
  Receive Date: 20111219
  Receipt Date: 20111215
  Transmission Date: 20120403
  Serious: Yes (Death)
  Sender: FDA-Public Use
  Company Number: FR-ASTRAZENECA-2011SE76000

PATIENT
  Age: 70 Year
  Sex: Male

DRUGS (8)
  1. PROCORALAN [Suspect]
     Route: 048
     Dates: end: 20110825
  2. ALUMINUM HYDROXIDE AND MAGNESIUM TRISILICATE [Suspect]
     Route: 048
     Dates: end: 20110825
  3. ASPIRIN [Suspect]
     Route: 048
     Dates: end: 20110825
  4. BISOPROLOL FUMARATE [Suspect]
     Indication: HYPERTENSION
     Route: 048
     Dates: end: 20110825
  5. ZESTRIL [Suspect]
     Indication: HYPERTENSION
     Route: 048
     Dates: end: 20110825
  6. OFLOXACIN [Suspect]
     Route: 048
     Dates: end: 20110825
  7. METFORMIN HCL [Suspect]
     Indication: TYPE 2 DIABETES MELLITUS
     Route: 048
     Dates: end: 20110825
  8. MOTILIUM [Suspect]
     Indication: VOMITING
     Route: 048
     Dates: end: 20110825

REACTIONS (5)
  - RENAL FAILURE ACUTE [None]
  - ARRHYTHMIA [None]
  - HYPERKALAEMIA [None]
  - BRADYCARDIA [None]
  - CARDIAC ARREST [None]
